FAERS Safety Report 12287968 (Version 1)
Quarter: 2016Q2

REPORT INFORMATION
  Report Type: Spontaneous
  Country: US (occurrence: US)
  Receive Date: 20160420
  Receipt Date: 20160420
  Transmission Date: 20160815
  Serious: No
  Sender: FDA-Public Use
  Company Number: US-ACTELION PHARMACEUTICALS US, INC.-A-US2016-134697

PATIENT
  Age: 76 Year
  Sex: Male

DRUGS (8)
  1. LIPITOR [Concomitant]
     Active Substance: ATORVASTATIN CALCIUM
  2. ENALAPRIL [Concomitant]
     Active Substance: ENALAPRIL
  3. PLAVIX [Concomitant]
     Active Substance: CLOPIDOGREL BISULFATE
  4. DILTIAZEM [Concomitant]
     Active Substance: DILTIAZEM
  5. UMECLIDINIUM [Concomitant]
     Active Substance: UMECLIDINIUM BROMIDE
  6. COMBIVENT [Concomitant]
     Active Substance: ALBUTEROL SULFATE\IPRATROPIUM BROMIDE
  7. OPSUMIT [Suspect]
     Active Substance: MACITENTAN
     Indication: PULMONARY ARTERIAL HYPERTENSION
     Dosage: 10 MG, QD
     Route: 048
     Dates: start: 20160219, end: 20160404
  8. LASIX [Concomitant]
     Active Substance: FUROSEMIDE

REACTIONS (3)
  - Pulmonary congestion [Recovering/Resolving]
  - Nasal congestion [Recovering/Resolving]
  - Blood pressure fluctuation [Recovering/Resolving]

NARRATIVE: CASE EVENT DATE: 20160404
